FAERS Safety Report 14860821 (Version 1)
Quarter: 2018Q2

REPORT INFORMATION
  Report Type: Spontaneous
  Country: CO (occurrence: CO)
  Receive Date: 20180508
  Receipt Date: 20180508
  Transmission Date: 20180711
  Serious: Yes (Other)
  Sender: FDA-Public Use
  Company Number: CO-PFIZER INC-2018186199

PATIENT
  Age: 11 Year
  Sex: Female

DRUGS (2)
  1. GENOTROPIN [Suspect]
     Active Substance: SOMATROPIN
     Indication: BODY HEIGHT BELOW NORMAL
     Dosage: 1.4 MG, DAILY
     Route: 058
     Dates: start: 201706
  2. GENOTROPIN [Suspect]
     Active Substance: SOMATROPIN
     Indication: SMALL FOR DATES BABY

REACTIONS (5)
  - Asthmatic crisis [Unknown]
  - Hypoventilation [Unknown]
  - Drug dose omission [Unknown]
  - Apnoea [Unknown]
  - Device issue [Unknown]

NARRATIVE: CASE EVENT DATE: 20170921
